FAERS Safety Report 7201270-7 (Version None)
Quarter: 2010Q4

REPORT INFORMATION
  Report Type: 
  Country: None (occurrence: None)
  Receive Date: 20101227
  Receipt Date: 20101227
  Transmission Date: 20110411
  Serious: Yes (Other)
  Sender: FDA-Public Use
  Company Number: None

PATIENT
  Age: 26 Year
  Sex: Female
  Weight: 56.6996 kg

DRUGS (2)
  1. YAZ [Suspect]
  2. YASMIN [Concomitant]

REACTIONS (1)
  - HYPOTHYROIDISM [None]
